FAERS Safety Report 5174363-6 (Version None)
Quarter: 2006Q4

REPORT INFORMATION
  Report Type: 
  Country: None (occurrence: None)
  Receive Date: 20061214
  Receipt Date: 20060907
  Transmission Date: 20070319
  Serious: Yes (Death, Life-Threatening, Other)
  Sender: FDA-Public Use
  Company Number: CA-ELI_LILLY_AND_COMPANY-CA200609001733

PATIENT
  Age: 35 Year
  Sex: Male
  Weight: 80 kg

DRUGS (15)
  1. PIPERACILLIN SODIUM W/TAZOBACTAM SODIUM [Concomitant]
     Dosage: 33.75 G, 3/D
     Route: 042
     Dates: start: 20060820, end: 20060823
  2. THIAMINE [Concomitant]
     Dosage: 100 MG, DAILY (1/D)
     Route: 042
     Dates: start: 20060820, end: 20060822
  3. HEPARIN [Concomitant]
     Dosage: 5000 U, 2/D
     Route: 058
     Dates: start: 20060820, end: 20060820
  4. ACETYLCYSTEINE [Concomitant]
     Dosage: 600 MG, 2/D
     Route: 042
     Dates: start: 20060820, end: 20060821
  5. FLAGYL [Concomitant]
     Dosage: 500 UNK, EVERY 6 HRS
     Route: 042
     Dates: start: 20060820, end: 20060823
  6. DOBUTAMINE HCL [Concomitant]
     Route: 042
     Dates: start: 20060820, end: 20060823
  7. NOREPINEPHRINE BITARTRATE [Concomitant]
     Route: 042
     Dates: start: 20060820, end: 20060823
  8. VANCOMYCIN [Concomitant]
     Dosage: 500 MG, EVERY 4 HRS
     Route: 050
     Dates: start: 20060820, end: 20060823
  9. VANCOMYCIN [Concomitant]
     Dosage: 500 UNK, EVERY 4 HRS
     Route: 054
  10. MORPHINE [Concomitant]
     Dates: start: 20060820, end: 20060823
  11. FAMOTIDINE [Concomitant]
     Dosage: 20 MG, DAILY (1/D)
     Route: 042
     Dates: start: 20060820, end: 20060823
  12. HYDROCORTISONE [Concomitant]
     Dosage: 50 MG, DAILY (1/D)
     Route: 042
     Dates: start: 20060820, end: 20060823
  13. FLUDROCORTISONE [Concomitant]
     Dosage: 50 UG, DAILY (1/D)
     Route: 048
     Dates: start: 20060820, end: 20060823
  14. SODIUM BICARBONATE [Concomitant]
     Dates: start: 20060820
  15. XIGRIS [Suspect]
     Indication: SEPSIS
     Dosage: 46.08 MG, DAILY (1/D)
     Route: 042
     Dates: start: 20060820, end: 20060820

REACTIONS (3)
  - DEATH [None]
  - HAEMORRHAGE [None]
  - INTERNATIONAL NORMALISED RATIO INCREASED [None]
